FAERS Safety Report 7690222-9 (Version None)
Quarter: 2011Q3

REPORT INFORMATION
  Report Type: 
  Country: None (occurrence: None)
  Receive Date: 20110817
  Receipt Date: 20110817
  Transmission Date: 20111222
  Serious: No
  Sender: FDA-Public Use
  Company Number: None

PATIENT
  Age: 78 Year
  Sex: Female
  Weight: 44.4525 kg

DRUGS (2)
  1. REMICADE [Suspect]
     Indication: RHEUMATOID ARTHRITIS
     Dosage: ACCORDING TO WEIGHT 2 MONTHS IV INFUS
     Route: 042
     Dates: start: 20110221, end: 20110418
  2. REMICADE [Suspect]
     Indication: RHEUMATOID ARTHRITIS
     Dosage: ACCORDING TO WEIGHT 2 MONTHS IV INFUS
     Route: 042
     Dates: start: 20110714

REACTIONS (10)
  - DIZZINESS [None]
  - VISUAL IMPAIRMENT [None]
  - HEADACHE [None]
  - CONVULSION [None]
  - NAUSEA [None]
  - COUGH [None]
  - BLADDER PAIN [None]
  - OROPHARYNGEAL PAIN [None]
  - FATIGUE [None]
  - ASTHENIA [None]
